FAERS Safety Report 23102166 (Version 3)
Quarter: 2024Q1

REPORT INFORMATION
  Report Type: Report from Study
  Country: US (occurrence: US)
  Receive Date: 20231025
  Receipt Date: 20240130
  Transmission Date: 20240409
  Serious: Yes (Other)
  Sender: FDA-Public Use
  Company Number: US-ABBVIE-5463335

PATIENT
  Sex: Female

DRUGS (2)
  1. SKYRIZI [Suspect]
     Active Substance: RISANKIZUMAB-RZAA
     Indication: Psoriatic arthropathy
     Dosage: STRENGHT-150MG/ML/WEEK 0/THERAPY END DATE: OCT 2023
     Route: 058
     Dates: start: 20231004
  2. SKYRIZI [Suspect]
     Active Substance: RISANKIZUMAB-RZAA
     Dosage: STRENGHT-150MG/ML/WEEK 4
     Route: 058
     Dates: start: 20231101, end: 20231113

REACTIONS (6)
  - Spinal operation [Recovered/Resolved]
  - Rash [Unknown]
  - Back pain [Not Recovered/Not Resolved]
  - Skin exfoliation [Recovering/Resolving]
  - Drug ineffective [Unknown]
  - Respiratory syncytial virus infection [Unknown]

NARRATIVE: CASE EVENT DATE: 20230101
